FAERS Safety Report 18193983 (Version 2)
Quarter: 2020Q3

REPORT INFORMATION
  Report Type: Report from Study
  Country: US (occurrence: US)
  Receive Date: 20200825
  Receipt Date: 20200827
  Transmission Date: 20201103
  Serious: Yes (Hospitalization)
  Sender: FDA-Public Use
  Company Number: US-B.I. PHARMACEUTICALS,INC./RIDGEFIELD-2020-MR-037919

PATIENT
  Age: 71 Year
  Sex: Female

DRUGS (1)
  1. OFEV [Suspect]
     Active Substance: NINTEDANIB
     Indication: IDIOPATHIC PULMONARY FIBROSIS
     Dosage: 150 MG BY MOUTH TWICE DAILY
     Route: 048
     Dates: start: 20200508, end: 20200731

REACTIONS (10)
  - Faeces discoloured [Unknown]
  - Diarrhoea [Recovered/Resolved]
  - Internal haemorrhage [Unknown]
  - Coronavirus infection [Recovered/Resolved]
  - Oxygen consumption [Not Recovered/Not Resolved]
  - Diarrhoea [Unknown]
  - Internal haemorrhage [Recovered/Resolved]
  - Discoloured vomit [Unknown]
  - Pneumonia [Recovered/Resolved]
  - Vomiting [Recovered/Resolved]

NARRATIVE: CASE EVENT DATE: 20200718
